FAERS Safety Report 4546124-X (Version None)
Quarter: 2005Q1

REPORT INFORMATION
  Report Type: 
  Country: None (occurrence: None)
  Receive Date: 20050105
  Receipt Date: 20050105
  Transmission Date: 20050727
  Serious: Yes (Other)
  Sender: FDA-Public Use
  Company Number: None

PATIENT
  Age: 56 Year
  Sex: Female
  Weight: 99.7913 kg

DRUGS (2)
  1. DEPO-MEDROL [Suspect]
     Indication: INTERVERTEBRAL DISC DEGENERATION
     Dosage: 40MG   10 INJECTIONS   EPIDURAL;  40 MG  15 INJECTIONS   EPIDURAL
     Route: 008
     Dates: start: 20040827, end: 20040924
  2. DEPO-MEDROL [Suspect]
     Indication: OSTEOARTHRITIS
     Dosage: 40MG   10 INJECTIONS   EPIDURAL;  40 MG  15 INJECTIONS   EPIDURAL
     Route: 008
     Dates: start: 20040827, end: 20040924

REACTIONS (2)
  - HYPOAESTHESIA [None]
  - PAIN [None]
